FAERS Safety Report 15661408 (Version 2)
Quarter: 2019Q1

REPORT INFORMATION
  Report Type: Spontaneous
  Country: CN (occurrence: CN)
  Receive Date: 20181127
  Receipt Date: 20190111
  Transmission Date: 20190417
  Serious: Yes (Death, Hospitalization)
  Sender: FDA-Public Use
  Company Number: CN-ASTRAZENECA-2018SF54836

PATIENT
  Sex: Male
  Weight: 75 kg

DRUGS (1)
  1. SYMBICORT [Suspect]
     Active Substance: BUDESONIDE\FORMOTEROL FUMARATE DIHYDRATE
     Indication: CHRONIC OBSTRUCTIVE PULMONARY DISEASE
     Dosage: 160UG/4.5UG, 1 PUFF ONCE A DAY
     Route: 055
     Dates: start: 20170810

REACTIONS (7)
  - Pneumonia [Not Recovered/Not Resolved]
  - Death [Fatal]
  - Sepsis [Not Recovered/Not Resolved]
  - Asthma [Not Recovered/Not Resolved]
  - Diarrhoea [Unknown]
  - Hepatic function abnormal [Not Recovered/Not Resolved]
  - Renal impairment [Not Recovered/Not Resolved]
